FAERS Safety Report 10132031 (Version 2)
Quarter: 2014Q2

REPORT INFORMATION
  Report Type: Spontaneous
  Country: US (occurrence: US)
  Receive Date: 20140428
  Receipt Date: 20140502
  Transmission Date: 20141212
  Serious: No
  Sender: FDA-Public Use
  Company Number: US-B.I. PHARMACEUTICALS,INC./RIDGEFIELD-2014-BI-17902BP

PATIENT
  Age: 52 Year
  Sex: Female

DRUGS (11)
  1. SPIRIVA [Suspect]
     Indication: CHRONIC OBSTRUCTIVE PULMONARY DISEASE
     Dosage: 18 MCG
     Route: 055
     Dates: start: 201304
  2. JANUMET [Concomitant]
     Indication: DIABETES MELLITUS
     Dosage: 1000 MG
     Route: 048
  3. WARFARIN [Concomitant]
     Indication: CEREBROVASCULAR ACCIDENT PROPHYLAXIS
     Dosage: 5 MG
     Route: 048
  4. METOPROLOL [Concomitant]
     Indication: HYPERTENSION
     Dosage: 100 MG
     Route: 048
  5. LOSARTAN HCTZ [Concomitant]
     Indication: HYPERTENSION
     Dosage: DOSE PER APPLICATION AND DAILY DOSE: 100MG/25MG
     Route: 048
  6. FENOFIBRATE [Concomitant]
     Indication: BLOOD CHOLESTEROL INCREASED
     Dosage: 160 MG
     Route: 048
  7. LIPITOR [Concomitant]
     Indication: BLOOD CHOLESTEROL INCREASED
     Dosage: 80 MG
     Route: 048
  8. TRAZODONE [Concomitant]
     Indication: SLEEP DISORDER
     Dosage: 100 MG
     Route: 048
  9. TRAZODONE [Concomitant]
     Indication: DEPRESSION
  10. MELOXICAM [Concomitant]
     Indication: RESTLESS LEGS SYNDROME
     Route: 048
  11. ASPIRIN [Concomitant]
     Indication: CARDIAC DISORDER
     Dosage: 81 MG
     Route: 048

REACTIONS (6)
  - Dyspnoea [Unknown]
  - Increased bronchial secretion [Unknown]
  - Cough [Unknown]
  - Product quality issue [Unknown]
  - Product quality issue [Unknown]
  - Product quality issue [Unknown]
